FAERS Safety Report 5422172-2 (Version None)
Quarter: 2007Q3

REPORT INFORMATION
  Report Type: 
  Country: None (occurrence: None)
  Receive Date: 20070821
  Receipt Date: 20070821
  Transmission Date: 20080115
  Serious: Yes (Other)
  Sender: FDA-Public Use
  Company Number: None

PATIENT
  Sex: Female
  Weight: 88.4514 kg

DRUGS (1)
  1. LEVAQUIN [Suspect]
     Indication: SINUSITIS
     Dosage: 500 MG 1X DAY FOR 10 DAYS
     Dates: start: 20070718, end: 20070725

REACTIONS (6)
  - ARTHRALGIA [None]
  - ASTHENIA [None]
  - INSOMNIA [None]
  - MUSCLE SPASMS [None]
  - TENDONITIS [None]
  - VIRAL INFECTION [None]
